FAERS Safety Report 8234666-5 (Version None)
Quarter: 2012Q1

REPORT INFORMATION
  Report Type: 
  Country: None (occurrence: None)
  Receive Date: 20120326
  Receipt Date: 20120321
  Transmission Date: 20120608
  Serious: Yes (Other)
  Sender: FDA-Public Use
  Company Number: US-PFIZER INC-2012073748

PATIENT
  Sex: Female

DRUGS (18)
  1. FLEXERIL [Concomitant]
     Indication: MUSCLE SPASMS
     Dosage: 10 MG (1 TABLET), 2X/DAY (TWO TIMES A DAY AS NEEDED)
     Route: 048
  2. NEURONTIN [Suspect]
     Dosage: 300 MG, 3X/DAY
     Route: 048
  3. LASIX [Concomitant]
     Dosage: 20 MG (1 TABLET), DAILY
     Route: 048
  4. ALBUTEROL SULFATE [Concomitant]
     Dosage: 180 UG (2 PUFFS OF 180 UG), 4X/DAY
  5. CELEBREX [Suspect]
     Dosage: 200 MG, 2X/DAY (1 CAPSULE 2 TIMES DAILY)
     Route: 048
  6. SYMBICORT [Concomitant]
     Dosage: UNK, 2X/DAY 320-9 MCG (INHALE 2 PUFFS OF 160-4.5 MCG INTO THE LUNGS), 2X/DAY
  7. CLARINEX [Concomitant]
     Dosage: 1 TABLET, DAILY
     Route: 048
  8. MUCINEX [Concomitant]
     Dosage: 1200 MG (2 TABLETS OF 600 MG), 2X/DAY
     Route: 048
  9. K-TAB [Concomitant]
     Dosage: 10 MEQ(1 CR TABLET), DAILY
     Route: 048
  10. VITAMIN B-12 [Concomitant]
     Dosage: 2500 UG (1 TABLET), DAILY
     Route: 060
  11. IMDUR [Concomitant]
     Dosage: 60 MG (1 TABLET), DAILY
     Route: 048
  12. ROFLUMILAST [Concomitant]
     Dosage: 500 UG (1 TABLET), DAILY (MAY BE GIVEN WITH OR WITHOUT FOOD)
     Route: 048
  13. WELCHOL [Concomitant]
     Dosage: 625 MG (1 TABLET), 2X/DAY (2 TIMES DAILY WITH MEALS)
     Route: 048
  14. METFORMIN/PIOGLITAZONE [Concomitant]
     Dosage: 850-30 MG (1 TABLET), 2X/DAY
     Route: 048
  15. NITROSTAT [Suspect]
     Indication: CHEST PAIN
     Dosage: 0.4 MG, AS NEEDED (PLACE 1 TABLET EVERY 5 MINUTES AS NEEDED)
     Route: 060
  16. SPIRIVA [Suspect]
     Dosage: 18 UG, (PLACE ONE CAPSULE IN DEVICE AND INHALE DAILY)
  17. PROZAC [Concomitant]
     Dosage: 40 MG, DAILY
     Route: 048
  18. LIDODERM [Concomitant]
     Dosage: PLACE 1 PATCH ONTO THE SKIN DAILY. REMOVE + DISCARD PATCH WITHIN 12 HOURS OR AS DIRECTED BY MD

REACTIONS (18)
  - NEURALGIA [None]
  - DYSPHEMIA [None]
  - BLOOD CHOLESTEROL INCREASED [None]
  - DIABETES MELLITUS INADEQUATE CONTROL [None]
  - BREAST PAIN [None]
  - ABDOMINAL PAIN UPPER [None]
  - OEDEMA [None]
  - CHRONIC OBSTRUCTIVE PULMONARY DISEASE [None]
  - RHINITIS ALLERGIC [None]
  - HEMIPARESIS [None]
  - DEPRESSION [None]
  - INSOMNIA [None]
  - VITAMIN D DEFICIENCY [None]
  - ESSENTIAL HYPERTENSION [None]
  - VITAMIN B12 DEFICIENCY [None]
  - BACK PAIN [None]
  - CHEST PAIN [None]
  - DIARRHOEA [None]
